FAERS Safety Report 13032423 (Version 1)
Quarter: 2016Q4

REPORT INFORMATION
  Report Type: Spontaneous
  Country: US (occurrence: US)
  Receive Date: 20161215
  Receipt Date: 20161215
  Transmission Date: 20170207
  Serious: No
  Sender: FDA-Public Use
  Company Number: US-ALLERGAN-1672545US

PATIENT
  Age: 69 Year
  Sex: Male

DRUGS (1)
  1. VIBERZI [Suspect]
     Active Substance: ELUXADOLINE
     Indication: IRRITABLE BOWEL SYNDROME
     Dosage: 75 MG, QD

REACTIONS (3)
  - Therapeutic response unexpected [Recovered/Resolved]
  - Drug prescribing error [Unknown]
  - Pre-existing condition improved [Recovered/Resolved]
